FAERS Safety Report 18953015 (Version 1)
Quarter: 2021Q1

REPORT INFORMATION
  Report Type: Spontaneous
  Country: US (occurrence: US)
  Receive Date: 20210301
  Receipt Date: 20210301
  Transmission Date: 20210420
  Serious: Yes (Hospitalization)
  Sender: FDA-Public Use
  Company Number: US-AMNEAL PHARMACEUTICALS-2021-AMRX-00510

PATIENT
  Sex: Male
  Weight: 6 kg

DRUGS (2)
  1. SABRIL [Concomitant]
     Active Substance: VIGABATRIN
     Indication: ILLNESS
     Dosage: UNK
     Route: 065
  2. VIGABATRIN. [Suspect]
     Active Substance: VIGABATRIN
     Indication: ILLNESS
     Dosage: 250 MILLIGRAM, 2 /DAY
     Route: 048

REACTIONS (2)
  - Product dose omission issue [Unknown]
  - Adverse event [Unknown]
